FAERS Safety Report 10235884 (Version 1)
Quarter: 2014Q1

REPORT INFORMATION
  Report Type: Spontaneous
  Country: US (occurrence: None)
  Receive Date: 20140306
  Receipt Date: 20140306
  Transmission Date: 20141002
  Serious: Yes (Hospitalization)
  Sender: FDA-Public Use
  Company Number: 163-21880-13103673

PATIENT
  Age: 56 Year
  Sex: Male

DRUGS (3)
  1. REVLIMIDE(LENALIDOMIDE)(5 MILLIGRAM, CAPSULES) [Suspect]
     Indication: PLASMA CELL MYELOMA
     Route: 048
     Dates: start: 201309, end: 20130916
  2. VELCADE(BORTEZOMIB)(UKNOWN) [Concomitant]
  3. DEXAMETHASONE(DEXAMETHASONE)(UKNOWN) [Concomitant]

REACTIONS (1)
  - Blood creatinine increased [None]
